FAERS Safety Report 8427972-2 (Version None)
Quarter: 2012Q2

REPORT INFORMATION
  Report Type: 
  Country: None (occurrence: None)
  Receive Date: 20120611
  Receipt Date: 20120601
  Transmission Date: 20120825
  Serious: Yes (Other)
  Sender: FDA-Public Use
  Company Number: US-FRI-1000029754

PATIENT
  Age: 16 Year
  Sex: Male

DRUGS (1)
  1. ESCITALOPRAM [Suspect]
     Indication: OBSESSIVE-COMPULSIVE DISORDER
     Dosage: 20 MG
     Dates: start: 20120405, end: 20120408

REACTIONS (9)
  - VOMITING [None]
  - ANXIETY [None]
  - PANIC REACTION [None]
  - OFF LABEL USE [None]
  - SUICIDAL IDEATION [None]
  - HOMICIDAL IDEATION [None]
  - OBSESSIVE-COMPULSIVE DISORDER [None]
  - HYPERHIDROSIS [None]
  - INSOMNIA [None]
